FAERS Safety Report 20912141 (Version 1)
Quarter: 2022Q2

REPORT INFORMATION
  Report Type: Spontaneous
  Country: US (occurrence: US)
  Receive Date: 20220603
  Receipt Date: 20220603
  Transmission Date: 20220720
  Serious: Yes (Other)
  Sender: FDA-Public Use
  Company Number: US-BRISTOL-MYERS SQUIBB COMPANY-2022-047899

PATIENT
  Age: 64 Year
  Sex: Male
  Weight: 61.68 kg

DRUGS (2)
  1. REVLIMID [Suspect]
     Active Substance: LENALIDOMIDE
     Indication: Plasma cell myeloma
     Dosage: 10 MG (INITIAL) QOD X 21 DAYS ON, 7 DAYS OFF
     Route: 048
     Dates: start: 202108
  2. REVLIMID [Suspect]
     Active Substance: LENALIDOMIDE
     Dosage: 15MG (CURRENT)  FREQ : QOD X 21 DAYS ON, 7 DAYS OFF
     Route: 048

REACTIONS (1)
  - Throat cancer [Unknown]
